FAERS Safety Report 7217660-2 (Version None)
Quarter: 2011Q1

REPORT INFORMATION
  Report Type: 
  Country: None (occurrence: None)
  Receive Date: 20110110
  Receipt Date: 20101228
  Transmission Date: 20110831
  Serious: Yes (Hospitalization)
  Sender: FDA-Public Use
  Company Number: DE-ROCHE-751483

PATIENT
  Sex: Male
  Weight: 81.8 kg

DRUGS (1)
  1. TRASTUZUMAB [Suspect]
     Dosage: CURRENTLY THE 5TH CYCLE
     Route: 042

REACTIONS (1)
  - PAPILLOEDEMA [None]
